FAERS Safety Report 21670866 (Version 1)
Quarter: 2022Q4

REPORT INFORMATION
  Report Type: Spontaneous
  Country: FR (occurrence: FR)
  Receive Date: 20221202
  Receipt Date: 20221202
  Transmission Date: 20230112
  Serious: Yes (Hospitalization, Other)
  Sender: FDA-Public Use
  Company Number: None

PATIENT
  Age: 68 Year
  Sex: Female
  Weight: 55 kg

DRUGS (3)
  1. METRONIDAZOLE [Suspect]
     Active Substance: METRONIDAZOLE
     Indication: Bacteraemia
     Dosage: 750 MILLIGRAM (MG), ONCE DAILY
     Route: 065
     Dates: start: 20221109, end: 20221115
  2. AUGMENTIN [Suspect]
     Active Substance: AMOXICILLIN\CLAVULANATE POTASSIUM
     Indication: Bacteraemia
     Dosage: UNK
     Route: 065
     Dates: start: 20221031, end: 20221108
  3. AMOXICILLIN [Suspect]
     Active Substance: AMOXICILLIN
     Indication: Bacteraemia
     Route: 065
     Dates: start: 20221102, end: 20221108

REACTIONS (1)
  - Hepatic cytolysis [Recovering/Resolving]

NARRATIVE: CASE EVENT DATE: 20221101
